FAERS Safety Report 7802697-2 (Version None)
Quarter: 2011Q4

REPORT INFORMATION
  Report Type: 
  Country: None (occurrence: None)
  Receive Date: 20111007
  Receipt Date: 20111003
  Transmission Date: 20120403
  Serious: Yes (Disabling, Other)
  Sender: FDA-Public Use
  Company Number: PHHY2011CA82297

PATIENT
  Sex: Female

DRUGS (11)
  1. RANITIDINE [Concomitant]
     Dosage: UNK UKN, UNK
  2. CELEXA [Concomitant]
     Dosage: UNK UKN, UNK
  3. PHENOBARBITAL TAB [Concomitant]
     Dosage: UNK UKN, UNK
  4. BENTYLOL [Concomitant]
     Dosage: UNK UKN, UNK
  5. DITROPAN [Concomitant]
     Dosage: UNK UKN, UNK
  6. DILANTIN [Concomitant]
     Dosage: UNK UKN, UNK
  7. ZOLEDRONOC ACID [Suspect]
     Indication: OSTEOPOROSIS
     Dosage: UNK UKN, UNK
     Route: 042
  8. ASPIRIN [Concomitant]
     Dosage: UNK UKN, UNK
  9. ATIVAN [Concomitant]
     Dosage: UNK UKN, UNK
  10. ENBREL [Concomitant]
     Dosage: UNK UKN, UNK
  11. HYDROCHLOROTHIAZIDE [Suspect]
     Dosage: UNK UKN, UNK

REACTIONS (4)
  - FATIGUE [None]
  - PAIN [None]
  - PNEUMONIA [None]
  - MALAISE [None]
